FAERS Safety Report 20097272 (Version 2)
Quarter: 2021Q4

REPORT INFORMATION
  Report Type: Spontaneous
  Country: US (occurrence: None)
  Receive Date: 20211122
  Receipt Date: 20211202
  Transmission Date: 20220304
  Serious: No
  Sender: FDA-Public Use
  Company Number: 2021A811573

PATIENT
  Sex: Male

DRUGS (2)
  1. BUDESONIDE\FORMOTEROL\GLYCOPYRRONIUM [Suspect]
     Active Substance: BUDESONIDE\FORMOTEROL\GLYCOPYRRONIUM
     Indication: Chronic obstructive pulmonary disease
     Dosage: 160/9/4.8MCG TWO RESPIRATORY INHALATIONS TWICE DAILY
     Route: 055
  2. VENTOLIN [Concomitant]
     Active Substance: ALBUTEROL SULFATE
     Route: 065

REACTIONS (8)
  - Weight decreased [Not Recovered/Not Resolved]
  - Skin laceration [Recovering/Resolving]
  - Incision site haemorrhage [Unknown]
  - Weight fluctuation [Unknown]
  - Dyspnoea [Unknown]
  - Drug dose omission by device [Unknown]
  - Wrong technique in device usage process [Unknown]
  - Intentional device misuse [Unknown]
